FAERS Safety Report 23795105 (Version 4)
Quarter: 2024Q3

REPORT INFORMATION
  Report Type: Report from Study
  Country: JP (occurrence: JP)
  Receive Date: 20240429
  Receipt Date: 20240712
  Transmission Date: 20241017
  Serious: Yes (Death, Life-Threatening, Other)
  Sender: DAIICHI
  Company Number: JP-DSJP-DSJ-2024-118635

PATIENT
  Age: 54 Year
  Sex: Female

DRUGS (6)
  1. QUIZARTINIB [Suspect]
     Active Substance: QUIZARTINIB
     Indication: Acute myeloid leukaemia
     Dosage: 26.5 MG, QD
     Route: 048
     Dates: start: 20220127, end: 20220209
  2. QUIZARTINIB [Suspect]
     Active Substance: QUIZARTINIB
     Dosage: 53 MG, QD
     Route: 048
     Dates: start: 20220210, end: 20220222
  3. QUIZARTINIB [Suspect]
     Active Substance: QUIZARTINIB
     Dosage: 26.5 MG, QD
     Route: 048
     Dates: start: 20220223, end: 20220228
  4. QUIZARTINIB [Suspect]
     Active Substance: QUIZARTINIB
     Dosage: 17.7 MG, QD
     Route: 048
     Dates: start: 20220301, end: 20220310
  5. QUIZARTINIB [Suspect]
     Active Substance: QUIZARTINIB
     Dosage: 17.7 MG, QD
     Route: 048
     Dates: start: 20221102, end: 20221117
  6. QUIZARTINIB [Suspect]
     Active Substance: QUIZARTINIB
     Dosage: 17.7 MG, QD
     Route: 048
     Dates: start: 20221122, end: 20221218

REACTIONS (7)
  - Cerebral haemorrhage [Fatal]
  - Bacteraemia [Recovered/Resolved]
  - Cellulitis [Not Recovered/Not Resolved]
  - Pneumonia [Not Recovered/Not Resolved]
  - Platelet count decreased [Not Recovered/Not Resolved]
  - Neutropenia [Recovered/Resolved]
  - Febrile neutropenia [Recovered/Resolved]

NARRATIVE: CASE EVENT DATE: 20220222
